FAERS Safety Report 5421026-5 (Version None)
Quarter: 2007Q3

REPORT INFORMATION
  Report Type: 
  Country: None (occurrence: None)
  Receive Date: 20070821
  Receipt Date: 20070814
  Transmission Date: 20080115
  Serious: Yes (Hospitalization)
  Sender: FDA-Public Use
  Company Number: A0600107A

PATIENT
  Age: 62 Year
  Sex: Male
  Weight: 105.9 kg

DRUGS (10)
  1. WELLBUTRIN XL [Suspect]
     Indication: DEPRESSION
     Dosage: 150MG PER DAY
     Route: 048
     Dates: start: 20040601, end: 20040801
  2. ADVAIR DISKUS 100/50 [Suspect]
     Indication: ASTHMA
     Dosage: 1PUFF TWICE PER DAY
     Route: 055
     Dates: start: 20030301, end: 20060801
  3. CYMBALTA [Concomitant]
     Indication: DEPRESSION
     Dosage: 30MG PER DAY
     Route: 048
     Dates: start: 20040101
  4. ACIPHEX [Concomitant]
     Dosage: 20MG PER DAY
     Dates: start: 20030301
  5. METOPROLOL SUCCINATE [Concomitant]
     Indication: HYPERTENSION
     Dosage: 25MG PER DAY
     Dates: start: 20050601
  6. ZYRTEC [Concomitant]
  7. SINGULAIR [Concomitant]
     Indication: ASTHMA
     Dates: start: 20030301
  8. SPIRIVA [Concomitant]
     Indication: CHRONIC OBSTRUCTIVE PULMONARY DISEASE
     Dates: start: 20060201
  9. ASPIRIN [Concomitant]
  10. VITAMIN CAP [Concomitant]
     Dates: start: 20060801

REACTIONS (13)
  - ANKLE FRACTURE [None]
  - CARDIAC FAILURE CONGESTIVE [None]
  - DISINHIBITION [None]
  - DIZZINESS [None]
  - FOOT FRACTURE [None]
  - MANIA [None]
  - MOOD ALTERED [None]
  - OEDEMA [None]
  - OSTEOPENIA [None]
  - OSTEOPOROSIS [None]
  - PERSONALITY CHANGE [None]
  - PLEURAL EFFUSION [None]
  - PRESYNCOPE [None]
